FAERS Safety Report 20207267 (Version 1)
Quarter: 2021Q4

REPORT INFORMATION
  Report Type: Spontaneous
  Country: US (occurrence: None)
  Receive Date: 20211219
  Receipt Date: 20211219
  Transmission Date: 20220303
  Serious: Yes (Hospitalization)
  Sender: FDA-Public Use
  Company Number: None

PATIENT
  Age: 70 Year
  Sex: Male

DRUGS (2)
  1. ACETAMINOPHEN\HYDROCODONE [Suspect]
     Active Substance: ACETAMINOPHEN\HYDROCODONE
     Indication: Pain
     Dates: start: 20211122, end: 20211206
  2. GABAPENTIN [Suspect]
     Active Substance: GABAPENTIN
     Indication: Pain
     Dates: start: 20210929, end: 20211206

REACTIONS (4)
  - Mental status changes [None]
  - Metabolic encephalopathy [None]
  - Toxic leukoencephalopathy [None]
  - Dialysis [None]

NARRATIVE: CASE EVENT DATE: 20211127
